FAERS Safety Report 16908179 (Version 1)
Quarter: 2019Q4

REPORT INFORMATION
  Report Type: Spontaneous
  Country: US (occurrence: US)
  Receive Date: 20191011
  Receipt Date: 20191011
  Transmission Date: 20200122
  Serious: No
  Sender: FDA-Public Use
  Company Number: US-PFIZER INC-2016442514

PATIENT
  Age: 35 Year
  Sex: Male
  Weight: 97.52 kg

DRUGS (1)
  1. LYRICA [Suspect]
     Active Substance: PREGABALIN
     Indication: SPINA BIFIDA
     Dosage: 300 MG, 2X/DAY
     Route: 048

REACTIONS (1)
  - Disturbance in attention [Unknown]
